FAERS Safety Report 5708217-0 (Version None)
Quarter: 2008Q2

REPORT INFORMATION
  Report Type: 
  Country: None (occurrence: None)
  Receive Date: 20080417
  Receipt Date: 20080411
  Transmission Date: 20081010
  Serious: Yes (Hospitalization, Other)
  Sender: FDA-Public Use
  Company Number: JP-GENENTECH-245331

PATIENT
  Age: 68 Year
  Sex: Male

DRUGS (6)
  1. ALTEPLASE [Suspect]
     Indication: CEREBRAL ARTERY EMBOLISM
     Dosage: 0.55 MG/KG, SINGLE
     Route: 042
     Dates: start: 20060401, end: 20060401
  2. RADICUT [Concomitant]
     Indication: DRUG USE FOR UNKNOWN INDICATION
     Dosage: 30 MG, UNK
     Dates: start: 20060401, end: 20060402
  3. ZANTAC [Concomitant]
     Indication: DRUG USE FOR UNKNOWN INDICATION
     Dates: start: 20060401, end: 20060403
  4. HEPARIN [Concomitant]
     Indication: DRUG USE FOR UNKNOWN INDICATION
     Dates: start: 20060402, end: 20060412
  5. UNASYN [Concomitant]
     Indication: DRUG USE FOR UNKNOWN INDICATION
     Dates: start: 20060403, end: 20060411
  6. NICARDIPINE HYDROCHLORIDE [Concomitant]
     Indication: DRUG USE FOR UNKNOWN INDICATION
     Dates: start: 20060401, end: 20060401

REACTIONS (1)
  - RENAL INFARCT [None]
